FAERS Safety Report 12849125 (Version 2)
Quarter: 2019Q2

REPORT INFORMATION
  Report Type: Spontaneous
  Country: JP (occurrence: JP)
  Receive Date: 20161014
  Receipt Date: 20190509
  Transmission Date: 20190711
  Serious: Yes (Hospitalization, Other)
  Sender: FDA-Public Use
  Company Number: JP-PFIZER INC-2016465064

PATIENT
  Age: 70 Year
  Sex: Male

DRUGS (5)
  1. SUNITINIB MALATE. [Suspect]
     Active Substance: SUNITINIB MALATE
     Indication: RENAL CELL CARCINOMA
     Dosage: 37.5 MG, CYCLIC (TWO WEEKS OF TREATMENT AND ONE WEEK OFF)
     Route: 048
  2. SUNITINIB MALATE. [Suspect]
     Active Substance: SUNITINIB MALATE
     Dosage: 37.5 MG, CYCLIC (FIFTH CYCLE INCLUDED TWO WEEKS OF TREATMENT FOLLOWED BY TWO WEEKS OFF)
     Route: 048
  3. SUNITINIB MALATE. [Suspect]
     Active Substance: SUNITINIB MALATE
     Dosage: 37.5 MG, CYCLIC (SIXTH CYCLE INCLUDED ONE WEEK OF TREATMENT FOLLOWED BY ONE WEEK OFF)
     Route: 048
  4. SUNITINIB MALATE. [Suspect]
     Active Substance: SUNITINIB MALATE
     Dosage: 25 MG, CYCLIC (SEVENTH CYCLE)
  5. SUNITINIB MALATE. [Suspect]
     Active Substance: SUNITINIB MALATE
     Dosage: 37.5 MG, CYCLIC (FOURTH CYCLE INCLUDED TWO WEEKS OF TREATMENT FOLLOWED BY THREE WEEKS OFF)
     Route: 048

REACTIONS (13)
  - Neutrophil count decreased [Unknown]
  - Palmar-plantar erythrodysaesthesia syndrome [Unknown]
  - Hypothyroidism [Unknown]
  - Malaise [Unknown]
  - Hepatitis fulminant [Recovering/Resolving]
  - Cardiac failure congestive [Recovering/Resolving]
  - Renal impairment [Recovering/Resolving]
  - Tumour lysis syndrome [Recovering/Resolving]
  - Platelet count decreased [Unknown]
  - Sepsis [Recovering/Resolving]
  - Left ventricular dysfunction [Not Recovered/Not Resolved]
  - Disseminated intravascular coagulation [Recovering/Resolving]
  - Epistaxis [Unknown]
